FAERS Safety Report 8369431-1 (Version None)
Quarter: 2012Q2

REPORT INFORMATION
  Report Type: 
  Country: None (occurrence: None)
  Receive Date: 20120518
  Receipt Date: 20120509
  Transmission Date: 20120825
  Serious: Yes (Other)
  Sender: FDA-Public Use
  Company Number: CH-JNJFOC-20120509835

PATIENT
  Age: 47 Year
  Sex: Female

DRUGS (1)
  1. XARELTO [Suspect]
     Indication: THROMBOSIS PROPHYLAXIS
     Route: 065
     Dates: start: 20120401, end: 20120407

REACTIONS (5)
  - CHEST PAIN [None]
  - CONJUNCTIVAL HAEMORRHAGE [None]
  - TACHYCARDIA [None]
  - PALPITATIONS [None]
  - HEADACHE [None]
